FAERS Safety Report 8550013 (Version 9)
Quarter: 2016Q2

REPORT INFORMATION
  Report Type: Spontaneous
  Country: US (occurrence: US)
  Receive Date: 20120507
  Receipt Date: 20160422
  Transmission Date: 20160815
  Serious: Yes (Other)
  Sender: FDA-Public Use
  Company Number: US-ASTRAZENECA-2012SE19196

PATIENT
  Age: 22915 Day
  Sex: Male
  Weight: 81.6 kg

DRUGS (27)
  1. TOPROL XL [Suspect]
     Active Substance: METOPROLOL SUCCINATE
     Indication: MYOCARDIAL INFARCTION
     Route: 048
     Dates: start: 1994
  2. LISINOPRIL. [Suspect]
     Active Substance: LISINOPRIL
     Indication: BLOOD PRESSURE ABNORMAL
     Dosage: PRINIVIL, 40 MG, DAILY
     Route: 048
     Dates: start: 20071226
  3. CRESTOR [Suspect]
     Active Substance: ROSUVASTATIN CALCIUM
     Indication: BLOOD CHOLESTEROL INCREASED
     Route: 048
  4. ASPIRIN. [Concomitant]
     Active Substance: ASPIRIN
     Indication: VEIN DISORDER
     Route: 048
  5. CRESTOR [Suspect]
     Active Substance: ROSUVASTATIN CALCIUM
     Indication: BLOOD CHOLESTEROL INCREASED
     Route: 048
  6. NIACIN. [Concomitant]
     Active Substance: NIACIN
     Indication: BLOOD CHOLESTEROL ABNORMAL
  7. TOPROL XL [Suspect]
     Active Substance: METOPROLOL SUCCINATE
     Indication: HYPERTENSION
     Route: 048
     Dates: start: 1994
  8. TOPROL XL [Suspect]
     Active Substance: METOPROLOL SUCCINATE
     Indication: HYPERTENSION
     Route: 048
     Dates: start: 1994
  9. CRESTOR [Suspect]
     Active Substance: ROSUVASTATIN CALCIUM
     Indication: BLOOD CHOLESTEROL INCREASED
     Route: 048
  10. CRESTOR [Suspect]
     Active Substance: ROSUVASTATIN CALCIUM
     Indication: BLOOD CHOLESTEROL INCREASED
     Route: 048
  11. DIGETEK [Concomitant]
     Indication: CARDIOVASCULAR EVENT PROPHYLAXIS
     Route: 048
     Dates: start: 20080602
  12. DIGETEK [Concomitant]
     Indication: CARDIOVASCULAR EVENT PROPHYLAXIS
     Route: 048
     Dates: start: 1994
  13. DIGITOXIN [Concomitant]
     Active Substance: DIGITOXIN
     Route: 048
     Dates: start: 20110510
  14. METOPROLOL TARTRATE. [Concomitant]
     Active Substance: METOPROLOL TARTRATE
     Indication: BLOOD PRESSURE ABNORMAL
     Route: 048
     Dates: start: 2001
  15. TERAZOSIN HYDROCHLORIDE. [Concomitant]
     Active Substance: TERAZOSIN HYDROCHLORIDE
     Route: 048
     Dates: start: 20110711
  16. DIAZEPAM. [Concomitant]
     Active Substance: DIAZEPAM
     Indication: RELAXATION THERAPY
     Route: 048
     Dates: start: 20061020
  17. AMOXIL [Concomitant]
     Active Substance: AMOXICILLIN
     Route: 048
     Dates: start: 20080812, end: 20110822
  18. LISINOPRIL. [Suspect]
     Active Substance: LISINOPRIL
     Indication: BLOOD PRESSURE ABNORMAL
     Dosage: PRINIVIL, 40 MG, DAILY
     Route: 048
     Dates: end: 2013
  19. ZETIA [Concomitant]
     Active Substance: EZETIMIBE
     Route: 048
     Dates: start: 20071226
  20. COUMADIN [Concomitant]
     Active Substance: WARFARIN SODIUM
     Route: 048
     Dates: start: 20071226
  21. CRESTOR [Suspect]
     Active Substance: ROSUVASTATIN CALCIUM
     Indication: BLOOD CHOLESTEROL INCREASED
     Dosage: 10MG ONE IN THE MORNING AND ONE IN THE EVENING
     Route: 048
  22. DIAZEPAM. [Concomitant]
     Active Substance: DIAZEPAM
     Indication: RELAXATION THERAPY
     Route: 048
     Dates: start: 1994
  23. NIACIN. [Concomitant]
     Active Substance: NIACIN
     Indication: BLOOD CHOLESTEROL ABNORMAL
  24. TOPROL XL [Suspect]
     Active Substance: METOPROLOL SUCCINATE
     Indication: MYOCARDIAL INFARCTION
     Route: 048
     Dates: start: 1994
  25. LISINOPRIL. [Suspect]
     Active Substance: LISINOPRIL
     Indication: BLOOD PRESSURE ABNORMAL
     Route: 048
     Dates: start: 20061120
  26. CRESTOR [Suspect]
     Active Substance: ROSUVASTATIN CALCIUM
     Indication: BLOOD CHOLESTEROL INCREASED
     Dosage: 5 MG THREE DAYS A WEEK AS WELL AS 7.5 MG FOR THE REST OF THE WEEK
     Route: 048
     Dates: start: 2010
  27. NIACIN. [Concomitant]
     Active Substance: NIACIN
     Indication: BLOOD CHOLESTEROL ABNORMAL

REACTIONS (25)
  - Product quality issue [Unknown]
  - Prostatitis [Unknown]
  - Drug prescribing error [Unknown]
  - Off label use [Unknown]
  - Type V hyperlipidaemia [Unknown]
  - Gastroenteritis viral [Unknown]
  - Cough [Not Recovered/Not Resolved]
  - Rhinitis allergic [Unknown]
  - Complication associated with device [Recovered/Resolved]
  - Cardiac disorder [Unknown]
  - Nephrolithiasis [Unknown]
  - Visual acuity reduced [Not Recovered/Not Resolved]
  - Drug dose omission [Not Recovered/Not Resolved]
  - Acute sinusitis [Unknown]
  - Off label use [Not Recovered/Not Resolved]
  - Rotator cuff syndrome [Unknown]
  - Contusion [Recovered/Resolved]
  - Road traffic accident [Recovered/Resolved]
  - Sinus disorder [Not Recovered/Not Resolved]
  - Blood cholesterol increased [Unknown]
  - Lacrimation increased [Not Recovered/Not Resolved]
  - Sneezing [Not Recovered/Not Resolved]
  - Back pain [Unknown]
  - Pruritus [Recovered/Resolved]
  - Rash [Unknown]

NARRATIVE: CASE EVENT DATE: 20061108
